FAERS Safety Report 6706846-9 (Version None)
Quarter: 2010Q2

REPORT INFORMATION
  Report Type: 
  Country: None (occurrence: None)
  Receive Date: 20100503
  Receipt Date: 20081017
  Transmission Date: 20101027
  Serious: Yes (Other)
  Sender: FDA-Public Use
  Company Number: GB-BAYER-200812914BNE

PATIENT

DRUGS (2)
  1. MABCAMPATH [Suspect]
     Indication: DRUG USE FOR UNKNOWN INDICATION
  2. ANTIBIOTICS (NOS) [Concomitant]

REACTIONS (1)
  - DEAFNESS [None]
